FAERS Safety Report 14776072 (Version 1)
Quarter: 2018Q2

REPORT INFORMATION
  Report Type: Other
  Country: US (occurrence: US)
  Receive Date: 20180418
  Receipt Date: 20180418
  Transmission Date: 20180711
  Serious: Yes (Hospitalization)
  Sender: FDA-Public Use
  Company Number: US-WALMART-2045963

PATIENT
  Age: 46 Year
  Sex: Male
  Weight: 95.46 kg

DRUGS (1)
  1. DOCUSATE SODIUM 250MG [Suspect]
     Active Substance: DOCUSATE SODIUM
     Indication: CONSTIPATION
     Route: 048
     Dates: start: 20180215, end: 20180218

REACTIONS (3)
  - Abdominal pain lower [Recovering/Resolving]
  - Intestinal obstruction [None]
  - Rectal haemorrhage [Recovered/Resolved]

NARRATIVE: CASE EVENT DATE: 20180218
